FAERS Safety Report 24676620 (Version 1)
Quarter: 2024Q4

REPORT INFORMATION
  Report Type: Spontaneous
  Country: RU (occurrence: RU)
  Receive Date: 20241128
  Receipt Date: 20241128
  Transmission Date: 20250115
  Serious: Yes (Death)
  Sender: AMGEN
  Company Number: RU-AMGEN-RUSSP2024231512

PATIENT

DRUGS (1)
  1. ROMIPLOSTIM [Suspect]
     Active Substance: ROMIPLOSTIM
     Indication: Immune thrombocytopenia
     Dosage: 1-3 UG/KG ADMINISTERED WEEKLY
     Route: 058

REACTIONS (1)
  - Death [Fatal]
